FAERS Safety Report 23786515 (Version 1)
Quarter: 2024Q2

REPORT INFORMATION
  Report Type: Report from Study
  Country: CO (occurrence: CO)
  Receive Date: 20240426
  Receipt Date: 20240426
  Transmission Date: 20240716
  Serious: Yes (Other)
  Sender: FDA-Public Use
  Company Number: CO-Merck Healthcare KGaA-2024021810

PATIENT
  Age: 10 Year
  Sex: Female

DRUGS (1)
  1. SAIZEN [Suspect]
     Active Substance: SOMATROPIN
     Indication: Product used for unknown indication
     Route: 058
     Dates: start: 20230207, end: 202306

REACTIONS (3)
  - Radius fracture [Recovered/Resolved]
  - Ulna fracture [Recovered/Resolved]
  - Insulin-like growth factor abnormal [Recovered/Resolved]

NARRATIVE: CASE EVENT DATE: 20230601
